FAERS Safety Report 16487940 (Version 1)
Quarter: 2019Q2

REPORT INFORMATION
  Report Type: Spontaneous
  Country: JP (occurrence: JP)
  Receive Date: 20190627
  Receipt Date: 20190627
  Transmission Date: 20190711
  Serious: Yes (Other)
  Sender: FDA-Public Use
  Company Number: JP-GLAXOSMITHKLINE-JP2019JPN112188

PATIENT
  Age: 78 Year
  Sex: Male

DRUGS (12)
  1. ZOVIRAX [Suspect]
     Active Substance: ACYCLOVIR
     Dosage: UNK
     Route: 048
  2. VALACICLOVIR HYDROCHLORIDE [Suspect]
     Active Substance: VALACYCLOVIR HYDROCHLORIDE
     Indication: HERPES ZOSTER
     Dosage: 1000 MG, TID
     Route: 048
     Dates: start: 20190529, end: 20190602
  3. LYRICA [Concomitant]
     Active Substance: PREGABALIN
     Dosage: 75 MG, QD
  4. RIVOTRIL [Concomitant]
     Active Substance: CLONAZEPAM
     Dosage: 0.5 MG, QD
  5. VALTREX [Suspect]
     Active Substance: VALACYCLOVIR HYDROCHLORIDE
     Indication: HERPES ZOSTER
     Dosage: 1000 MG, TID
     Route: 048
  6. MECOBALAMIN [Concomitant]
     Active Substance: METHYLCOBALAMIN
     Dosage: 500 MG, TID
  7. CHINESE MEDICINE [Concomitant]
     Active Substance: UNSPECIFIED INGREDIENT
     Dosage: 2.5 G, BID
  8. MAGNESIUM OXIDE TABLET [Concomitant]
     Dosage: 330 MG, TID
  9. TIZANIDINE. [Concomitant]
     Active Substance: TIZANIDINE
     Dosage: UNK UNK, TID
  10. CELECOX TABLETS [Concomitant]
     Dosage: 100 MG, BID
  11. TOFISOPAM [Concomitant]
     Active Substance: TOFISOPAM
     Dosage: 50 MG, TID
     Dates: end: 20190603
  12. IFENPRODIL TARTRATE [Concomitant]
     Active Substance: IFENPRODIL TARTRATE
     Dosage: 20 MG, TID
     Dates: end: 20190603

REACTIONS (14)
  - Altered state of consciousness [Recovered/Resolved]
  - Cerebral infarction [Unknown]
  - Gait disturbance [Unknown]
  - Dyslalia [Unknown]
  - Chest X-ray abnormal [Unknown]
  - Grip strength decreased [Unknown]
  - Dysuria [Unknown]
  - Encephalitis toxic [Unknown]
  - Asthenia [Unknown]
  - Renal impairment [Recovered/Resolved]
  - Pyelocaliectasis [Unknown]
  - Hypoaesthesia [Unknown]
  - Sacral radiculopathy [Unknown]
  - Nephritis [Unknown]

NARRATIVE: CASE EVENT DATE: 20190602
